FAERS Safety Report 24873086 (Version 1)
Quarter: 2025Q1

REPORT INFORMATION
  Report Type: Report from Study
  Country: US (occurrence: US)
  Receive Date: 20250122
  Receipt Date: 20250122
  Transmission Date: 20250409
  Serious: No
  Sender: ACADIA PHARMACEUTICALS
  Company Number: US-ACADIA PHARMACEUTICALS INC.-ACA-2025-PIM-000326

PATIENT
  Age: 88 Year
  Sex: Female

DRUGS (17)
  1. NUPLAZID [Suspect]
     Active Substance: PIMAVANSERIN TARTRATE
     Indication: Parkinson^s disease
     Dosage: 34 MILLIGRAM, QD
     Route: 048
     Dates: start: 20230313
  2. NUPLAZID [Suspect]
     Active Substance: PIMAVANSERIN TARTRATE
     Indication: Hallucination
  3. SINEMET CR [Concomitant]
     Active Substance: CARBIDOPA\LEVODOPA
  4. METOPROLOL [Concomitant]
     Active Substance: METOPROLOL
  5. FAMOTIDINE [Concomitant]
     Active Substance: FAMOTIDINE
  6. VITAMIN D3 [Concomitant]
     Active Substance: CHOLECALCIFEROL
  7. VENLAFAXINE [Concomitant]
     Active Substance: VENLAFAXINE HYDROCHLORIDE
  8. LEVOTHROID [Concomitant]
     Active Substance: LEVOTHYROXINE SODIUM
  9. FUROSEMIDE [Concomitant]
     Active Substance: FUROSEMIDE
  10. ASPIRIN [Concomitant]
     Active Substance: ASPIRIN
  11. ALLOPURINOL [Concomitant]
     Active Substance: ALLOPURINOL
  12. TYLENOL [Concomitant]
     Active Substance: ACETAMINOPHEN
  13. TRAMADOL [Concomitant]
     Active Substance: TRAMADOL
  14. DETROL [Concomitant]
     Active Substance: TOLTERODINE TARTRATE
  15. OXYBUTYNIN [Concomitant]
     Active Substance: OXYBUTYNIN
  16. AMLODIPINE [Concomitant]
     Active Substance: AMLODIPINE BESYLATE
  17. LEVOTHYROXINE [Concomitant]
     Active Substance: LEVOTHYROXINE

REACTIONS (1)
  - Urinary tract infection [Recovered/Resolved]

NARRATIVE: CASE EVENT DATE: 20241202
